FAERS Safety Report 22189714 (Version 1)
Quarter: 2023Q2

REPORT INFORMATION
  Report Type: Spontaneous
  Country: US (occurrence: US)
  Receive Date: 20230410
  Receipt Date: 20230410
  Transmission Date: 20230722
  Serious: No
  Sender: FDA-Public Use
  Company Number: US-SA-SAC20230405000152

PATIENT
  Age: 1 Year
  Sex: Female

DRUGS (1)
  1. LARONIDASE [Suspect]
     Active Substance: LARONIDASE

REACTIONS (1)
  - Complement factor C3 increased [Unknown]

NARRATIVE: CASE EVENT DATE: 20230320
